FAERS Safety Report 13739702 (Version 1)
Quarter: 2017Q3

REPORT INFORMATION
  Report Type: Spontaneous
  Country: BR (occurrence: BR)
  Receive Date: 20170710
  Receipt Date: 20170710
  Transmission Date: 20171127
  Serious: Yes (Hospitalization)
  Sender: FDA-Public Use
  Company Number: PHHY2016BR041086

PATIENT
  Age: 75 Year
  Sex: Male
  Weight: 75 kg

DRUGS (1)
  1. HYDERGINE [Suspect]
     Active Substance: ERGOLOID MESYLATES
     Indication: CEREBRAL DISORDER
     Dosage: 1 DF, QD IN THE MORNING
     Route: 048
     Dates: start: 201511

REACTIONS (1)
  - Liver disorder [Recovering/Resolving]
